FAERS Safety Report 8910521 (Version 1)
Quarter: 2012Q4

REPORT INFORMATION
  Report Type: 
  Country: BR (occurrence: BR)
  Receive Date: 20121115
  Receipt Date: 20121115
  Transmission Date: 20130627
  Serious: Yes (Other)
  Sender: FDA-Public Use
  Company Number: BR-AMGEN-BRASP2012007361

PATIENT
  Age: 50 Year
  Sex: Female
  Weight: 80 kg

DRUGS (5)
  1. ENBREL [Suspect]
     Indication: RHEUMATOID ARTHRITIS
     Dosage: 50 mg, weekly
     Route: 058
     Dates: start: 201201, end: 201205
  2. METHOTREXATE [Concomitant]
     Dosage: 8 tablets of 2.5mg (20 mg), weekly
  3. PREDSIM [Concomitant]
     Dosage: 5 mg, 1x/day
  4. ENDOFOLIN [Concomitant]
     Dosage: 5mg twice weekly
  5. NATRILIX SR [Concomitant]
     Indication: DIURETIC THERAPY
     Dosage: 1.5 mg, 1x/day

REACTIONS (8)
  - Throat irritation [Not Recovered/Not Resolved]
  - Sarcoidosis [Recovering/Resolving]
  - Rash [Recovering/Resolving]
  - Pain [Unknown]
  - Pain in extremity [Unknown]
  - Arthralgia [Unknown]
  - Oedema peripheral [Unknown]
  - Joint swelling [Unknown]
